FAERS Safety Report 4429997-0 (Version None)
Quarter: 2004Q3

REPORT INFORMATION
  Report Type: 
  Country: None (occurrence: None)
  Receive Date: 20040817
  Receipt Date: 20040817
  Transmission Date: 20050211
  Serious: Yes (Hospitalization)
  Sender: FDA-Public Use
  Company Number: None

PATIENT
  Age: 60 Year
  Sex: Male
  Weight: 98.8842 kg

DRUGS (2)
  1. CISPLATIN [Suspect]
     Indication: LARYNGEAL CANCER
     Dosage: 75 MG/M2 L Q 3 WK/IV
     Route: 042
  2. TAXOTERE [Suspect]
     Indication: LARYNGEAL CANCER
     Dosage: 75 MG /M2; Q3 WKS/IV
     Route: 042

REACTIONS (1)
  - DISEASE PROGRESSION [None]
